FAERS Safety Report 9242085 (Version 1)
Quarter: 2013Q2

REPORT INFORMATION
  Report Type: Spontaneous
  Country: FI (occurrence: FI)
  Receive Date: 20130419
  Receipt Date: 20130419
  Transmission Date: 20140414
  Serious: Yes (Hospitalization, Other)
  Sender: FDA-Public Use
  Company Number: FI-ABBOTT-13P-055-1073102-00

PATIENT
  Age: 63 Year
  Sex: Female

DRUGS (17)
  1. HUMIRA [Suspect]
     Indication: SPONDYLITIS
     Route: 058
     Dates: start: 200904
  2. HUMIRA [Suspect]
     Indication: DRUG RESISTANCE
     Route: 058
     Dates: start: 20120323, end: 20120827
  3. LEFLUNOMIDE [Suspect]
     Indication: PRODUCT USED FOR UNKNOWN INDICATION
  4. SULFASALAZINE [Suspect]
     Indication: PRODUCT USED FOR UNKNOWN INDICATION
  5. ANALGESICS [Concomitant]
     Indication: PRODUCT USED FOR UNKNOWN INDICATION
  6. CORTISONE [Concomitant]
     Indication: PRODUCT USED FOR UNKNOWN INDICATION
  7. TREXAN [Concomitant]
     Indication: PRODUCT USED FOR UNKNOWN INDICATION
  8. PREDNISOLON [Concomitant]
     Indication: PRODUCT USED FOR UNKNOWN INDICATION
  9. PREDNISOLON [Concomitant]
  10. PREDNISOLON [Concomitant]
     Dosage: 5MG 1.5 TIMES A DAY
  11. PREDNISOLON [Concomitant]
     Dates: start: 20120910
  12. KINZALKOMB [Concomitant]
     Indication: PRODUCT USED FOR UNKNOWN INDICATION
     Dosage: 40/12.5 MG ONCE
  13. SOMAC [Concomitant]
     Indication: PRODUCT USED FOR UNKNOWN INDICATION
     Dosage: 1 X 1 - 2
  14. KALCIPOS-D [Concomitant]
     Indication: PRODUCT USED FOR UNKNOWN INDICATION
  15. OFTAGEL [Concomitant]
     Indication: PRODUCT USED FOR UNKNOWN INDICATION
  16. KETORIN [Concomitant]
     Indication: PRODUCT USED FOR UNKNOWN INDICATION
  17. PANADOL [Concomitant]
     Indication: PRODUCT USED FOR UNKNOWN INDICATION

REACTIONS (17)
  - Pancreatitis acute [Recovered/Resolved]
  - Hypertension [Unknown]
  - Diverticulum intestinal [Unknown]
  - Foot operation [Unknown]
  - Diarrhoea [Recovered/Resolved]
  - Abdominal pain upper [Recovered/Resolved]
  - Diarrhoea [Recovered/Resolved]
  - C-reactive protein increased [Recovered/Resolved]
  - Arthropathy [Unknown]
  - Photosensitivity reaction [Not Recovered/Not Resolved]
  - Erythema [Not Recovered/Not Resolved]
  - Neutropenia [Unknown]
  - Alopecia [Not Recovered/Not Resolved]
  - Pyrexia [Unknown]
  - Leukopenia [Unknown]
  - Lymphopenia [Unknown]
  - Osteosclerosis [Unknown]
